FAERS Safety Report 5975253-9 (Version None)
Quarter: 2008Q4

REPORT INFORMATION
  Report Type: 
  Country: None (occurrence: None)
  Receive Date: 20081202
  Receipt Date: 20080515
  Transmission Date: 20090506
  Serious: No
  Sender: FDA-Public Use
  Company Number: US-BAYER-200812239BCC

PATIENT
  Age: 72 Year
  Sex: Female

DRUGS (9)
  1. ALEVE [Suspect]
     Indication: ADENOMATOUS POLYPOSIS COLI
     Dosage: TOTAL DAILY DOSE: 440 MG  UNIT DOSE: 220 MG
     Route: 048
     Dates: start: 20020101
  2. NOVOLOG [Concomitant]
  3. LANTUS [Concomitant]
  4. AVAPRO [Concomitant]
  5. LIPITOR [Concomitant]
  6. CARBAMAZEPINE [Concomitant]
  7. FUROSEMIDE [Concomitant]
  8. ASPIRIN [Concomitant]
  9. CALCIUM + D [Concomitant]

REACTIONS (1)
  - ARTHRALGIA [None]
